FAERS Safety Report 24348415 (Version 1)
Quarter: 2024Q3

REPORT INFORMATION
  Report Type: Spontaneous
  Country: US (occurrence: US)
  Receive Date: 20240923
  Receipt Date: 20240923
  Transmission Date: 20241016
  Serious: Yes (Other)
  Sender: SPECGX
  Company Number: US-SPECGX-T202401900

PATIENT
  Age: 27 Year
  Sex: Male

DRUGS (2)
  1. OXYCODONE [Suspect]
     Active Substance: OXYCODONE
     Indication: Product used for unknown indication
     Dosage: UNK
     Route: 065
  2. NALOXONE [Suspect]
     Active Substance: NALOXONE
     Indication: Overdose
     Dosage: 6 MILLIGRAM
     Route: 045

REACTIONS (3)
  - Mechanical ventilation [Unknown]
  - Overdose [Unknown]
  - Pulmonary oedema [Recovered/Resolved]
